FAERS Safety Report 13775895 (Version 2)
Quarter: 2017Q3

REPORT INFORMATION
  Report Type: Spontaneous
  Country: IT (occurrence: IT)
  Receive Date: 20170721
  Receipt Date: 20170803
  Transmission Date: 20171127
  Serious: Yes (Other)
  Sender: FDA-Public Use
  Company Number: IT-BEH-2017082094

PATIENT
  Age: 20 Year
  Sex: Male

DRUGS (4)
  1. HIZENTRA [Suspect]
     Active Substance: HUMAN IMMUNOGLOBULIN G
     Indication: IMMUNODEFICIENCY COMMON VARIABLE
     Dosage: 6 G, QW
     Route: 058
     Dates: start: 20170610, end: 20170624
  2. HIZENTRA [Suspect]
     Active Substance: HUMAN IMMUNOGLOBULIN G
     Dosage: UNK
     Route: 058
  3. HIZENTRA [Suspect]
     Active Substance: HUMAN IMMUNOGLOBULIN G
     Dosage: UNK
     Route: 058
  4. HIZENTRA [Suspect]
     Active Substance: HUMAN IMMUNOGLOBULIN G
     Dosage: UNK
     Route: 058

REACTIONS (8)
  - Infusion site warmth [Recovering/Resolving]
  - Infusion site erythema [Recovering/Resolving]
  - Pruritus generalised [Recovering/Resolving]
  - Infusion site oedema [Recovering/Resolving]
  - Infusion site pain [Recovering/Resolving]
  - Hyperpyrexia [Recovering/Resolving]
  - Urticaria [Recovering/Resolving]
  - Infusion site induration [Recovering/Resolving]

NARRATIVE: CASE EVENT DATE: 20170610
